FAERS Safety Report 8152829-4 (Version None)
Quarter: 2012Q1

REPORT INFORMATION
  Report Type: 
  Country: None (occurrence: None)
  Receive Date: 20120216
  Receipt Date: 20120216
  Transmission Date: 20120608
  Serious: Yes (Life-Threatening)
  Sender: FDA-Public Use
  Company Number: None

PATIENT

DRUGS (2)
  1. LACTATED RINGER'S [Suspect]
  2. MULTIVITAMIN INFUVITE [Suspect]

REACTIONS (10)
  - ANAPHYLACTIC REACTION [None]
  - DYSPNOEA [None]
  - PRURITUS [None]
  - HYPOAESTHESIA [None]
  - PARAESTHESIA [None]
  - CHEST DISCOMFORT [None]
  - INFUSION RELATED REACTION [None]
  - DIZZINESS [None]
  - ERYTHEMA [None]
  - FEELING HOT [None]
